FAERS Safety Report 9800884 (Version 1)
Quarter: 2014Q1

REPORT INFORMATION
  Report Type: Spontaneous
  Country: FR (occurrence: FR)
  Receive Date: 20140107
  Receipt Date: 20140107
  Transmission Date: 20141002
  Serious: Yes (Hospitalization)
  Sender: FDA-Public Use
  Company Number: FR-JNJFOC-20140100465

PATIENT
  Age: 12 Year
  Sex: Male

DRUGS (3)
  1. REMICADE [Suspect]
     Indication: CROHN^S DISEASE
     Dosage: RECEIVED A 6TH INFUSION
     Route: 042
     Dates: start: 20130606
  2. REMICADE [Suspect]
     Indication: CROHN^S DISEASE
     Route: 042
  3. REMICADE [Suspect]
     Indication: CROHN^S DISEASE
     Dosage: 5TH COURSE OF INFLIXIMAB
     Route: 042
     Dates: start: 20130530

REACTIONS (5)
  - Hypersensitivity [Recovered/Resolved]
  - Lip oedema [Recovered/Resolved]
  - Tachycardia [Recovered/Resolved]
  - Choking sensation [Recovered/Resolved]
  - Infusion related reaction [Recovered/Resolved]
